FAERS Safety Report 4578952-9 (Version None)
Quarter: 2005Q1

REPORT INFORMATION
  Report Type: 
  Country: None (occurrence: None)
  Receive Date: 20050211
  Receipt Date: 20041221
  Transmission Date: 20050727
  Serious: Yes (Hospitalization)
  Sender: FDA-Public Use
  Company Number: PH-MERCK-0412PHL00014

PATIENT
  Age: 68 Year
  Sex: Male

DRUGS (5)
  1. ZETIA [Suspect]
     Indication: HYPERCHOLESTEROLAEMIA
     Route: 048
     Dates: start: 20041001
  2. [THERAPY UNSPECIFIED] [Concomitant]
     Route: 048
  3. FELODIPINE [Concomitant]
     Route: 048
  4. CLOPIDOGREL BISULFATE [Concomitant]
     Route: 048
  5. METOPROLOL TARTRATE [Concomitant]
     Route: 048

REACTIONS (2)
  - DYSPNOEA [None]
  - HYPERTENSION [None]
